FAERS Safety Report 8302850-8 (Version None)
Quarter: 2012Q2

REPORT INFORMATION
  Report Type: 
  Country: None (occurrence: None)
  Receive Date: 20120420
  Receipt Date: 20120412
  Transmission Date: 20120825
  Serious: Yes (Other)
  Sender: FDA-Public Use
  Company Number: IT-MPIJNJ-2012-02568

PATIENT

DRUGS (6)
  1. VINCRISTINE [Suspect]
     Indication: LEUKAEMIA PLASMACYTIC
  2. CYCLOPHOSPHAMIDE [Suspect]
     Indication: LEUKAEMIA PLASMACYTIC
  3. VELCADE [Suspect]
     Indication: LEUKAEMIA PLASMACYTIC
  4. THALIDOMIDE [Suspect]
     Indication: LEUKAEMIA PLASMACYTIC
  5. DOXORUBICIN HCL [Suspect]
     Indication: LEUKAEMIA PLASMACYTIC
  6. DEXAMETHASONE [Suspect]
     Indication: LEUKAEMIA PLASMACYTIC

REACTIONS (1)
  - HEPATITIS B [None]
